FAERS Safety Report 4267974-3 (Version None)
Quarter: 2004Q1

REPORT INFORMATION
  Report Type: 
  Country: None (occurrence: None)
  Receive Date: 20040107
  Receipt Date: 20021107
  Transmission Date: 20041129
  Serious: No
  Sender: FDA-Public Use
  Company Number: 2002UW15304

PATIENT
  Age: 17 Year

DRUGS (1)
  1. DIPRIVAN [Suspect]
     Indication: SEDATION

REACTIONS (1)
  - CARDIAC FAILURE [None]
